FAERS Safety Report 17640279 (Version 2)
Quarter: 2020Q3

REPORT INFORMATION
  Report Type: Spontaneous
  Country: US (occurrence: US)
  Receive Date: 20200408
  Receipt Date: 20200803
  Transmission Date: 20201102
  Serious: No
  Sender: FDA-Public Use
  Company Number: US-AMGEN-USASP2020056486

PATIENT
  Sex: Male

DRUGS (1)
  1. ENBREL [Suspect]
     Active Substance: ETANERCEPT
     Indication: BODY MASS INDEX
     Dosage: UNK
     Route: 065

REACTIONS (3)
  - Off label use [Unknown]
  - Eye infection [Recovered/Resolved]
  - Injection site pain [Recovered/Resolved]
